FAERS Safety Report 7331754-2 (Version None)
Quarter: 2011Q1

REPORT INFORMATION
  Report Type: 
  Country: None (occurrence: None)
  Receive Date: 20110224
  Receipt Date: 20110113
  Transmission Date: 20110831
  Serious: Yes (Disabling)
  Sender: FDA-Public Use
  Company Number: 2011SP002046

PATIENT
  Age: 21 Year
  Sex: Female
  Weight: 55 kg

DRUGS (1)
  1. NUVARING [Suspect]
     Indication: PRODUCT USED FOR UNKNOWN INDICATION
     Dates: end: 20100801

REACTIONS (4)
  - LICHEN SCLEROSUS [None]
  - VULVOVAGINAL PRURITUS [None]
  - ATROPHIC VULVOVAGINITIS [None]
  - DYSPAREUNIA [None]
